FAERS Safety Report 10300329 (Version 2)
Quarter: 2014Q3

REPORT INFORMATION
  Report Type: Spontaneous
  Country: FR (occurrence: FR)
  Receive Date: 20140712
  Receipt Date: 20140804
  Transmission Date: 20150326
  Serious: Yes (Hospitalization)
  Sender: FDA-Public Use
  Company Number: FR-ABBVIE-14K-056-1257318-00

PATIENT
  Age: 40 Year
  Sex: Female

DRUGS (11)
  1. SEVORANE [Suspect]
     Active Substance: SEVOFLURANE
     Indication: GENERAL ANAESTHESIA
     Dates: start: 20140513, end: 20140513
  2. TRACRIUM [Suspect]
     Active Substance: ATRACURIUM BESYLATE
     Indication: PRODUCT USED FOR UNKNOWN INDICATION
     Dates: start: 20140513, end: 20140513
  3. KETAMINE [Suspect]
     Active Substance: KETAMINE
     Indication: PRODUCT USED FOR UNKNOWN INDICATION
     Route: 042
     Dates: start: 20140513, end: 20140513
  4. EPHEDRINE NOS [Suspect]
     Active Substance: EPHEDRINE
     Indication: PRODUCT USED FOR UNKNOWN INDICATION
     Dates: start: 20140513, end: 20140513
  5. PROFENID [Suspect]
     Active Substance: KETOPROFEN
     Indication: GENERAL ANAESTHESIA
     Route: 042
     Dates: start: 20140513, end: 20140513
  6. SUFENTANIL [Suspect]
     Active Substance: SUFENTANIL
     Indication: GENERAL ANAESTHESIA
     Route: 042
     Dates: start: 20140513, end: 20140513
  7. DEXAMETHASONE MERCK [Suspect]
     Active Substance: DEXAMETHASONE
     Indication: PRODUCT USED FOR UNKNOWN INDICATION
     Dates: start: 20140513, end: 20140513
  8. DROLEPTAN [Suspect]
     Active Substance: DROPERIDOL
     Indication: PRODUCT USED FOR UNKNOWN INDICATION
     Route: 042
     Dates: start: 20140513, end: 20140513
  9. AMOXICILLINE/CLAVULAANZUUR SANDOZ [Suspect]
     Active Substance: AMOXICILLIN\CLAVULANATE POTASSIUM
     Indication: PROPHYLAXIS
     Dosage: VIAL OF 100ML BY SLOW INTRAVENOUS
     Route: 042
     Dates: start: 20140513, end: 20140513
  10. DIPRIVAN [Suspect]
     Active Substance: PROPOFOL
     Indication: GENERAL ANAESTHESIA
     Route: 042
     Dates: start: 20140513, end: 20140513
  11. XYLOCAINE WITH EPINEPHRINE [Suspect]
     Active Substance: EPINEPHRINE BITARTRATE\LIDOCAINE HYDROCHLORIDE
     Indication: PRODUCT USED FOR UNKNOWN INDICATION
     Dates: start: 20140513, end: 20140513

REACTIONS (4)
  - Cardiac failure [Unknown]
  - Hypovolaemia [Unknown]
  - Renal failure acute [Recovered/Resolved]
  - Haemodynamic instability [Unknown]

NARRATIVE: CASE EVENT DATE: 20140513
